FAERS Safety Report 9122123 (Version 1)
Quarter: 2013Q1

REPORT INFORMATION
  Report Type: Report from Study
  Country: FR (occurrence: FR)
  Receive Date: 20130227
  Receipt Date: 20130227
  Transmission Date: 20140127
  Serious: Yes (Hospitalization)
  Sender: FDA-Public Use
  Company Number: FR-PFIZER INC-2013018096

PATIENT
  Age: 81 Year
  Sex: Male
  Weight: 172 kg

DRUGS (5)
  1. TORISEL [Suspect]
     Indication: NEOPLASM MALIGNANT
     Dosage: 75 MG, WEEKLY
     Dates: start: 20091016, end: 20091228
  2. TORISEL [Suspect]
     Dosage: 75 MG, WEEKLY
     Dates: start: 20100408, end: 20100506
  3. TORISEL [Suspect]
     Dosage: 25 MG, WEEKLY
     Dates: start: 20100506, end: 20100617
  4. TORISEL [Suspect]
     Dosage: 75 MG, WEEKLY
     Dates: start: 20120302, end: 20120413
  5. SOTALOL [Concomitant]
     Indication: HYPERTENSION
     Dosage: UNK
     Route: 048

REACTIONS (11)
  - Abdominal pain [Not Recovered/Not Resolved]
  - Hyperthermia [Not Recovered/Not Resolved]
  - Mucosal inflammation [Recovered/Resolved]
  - Lung disorder [Recovered/Resolved]
  - Thrombocytopenia [Unknown]
  - Pulmonary toxicity [Recovered/Resolved]
  - Cough [Recovered/Resolved]
  - Toxicity to various agents [Recovered/Resolved]
  - Disease progression [Unknown]
  - Neoplasm malignant [Unknown]
  - General physical health deterioration [Unknown]
